FAERS Safety Report 10155049 (Version 1)
Quarter: 2014Q2

REPORT INFORMATION
  Report Type: Spontaneous
  Country: US (occurrence: US)
  Receive Date: 20140506
  Receipt Date: 20140506
  Transmission Date: 20141212
  Serious: Yes (Other)
  Sender: FDA-Public Use
  Company Number: US-PFIZER INC-2014119122

PATIENT
  Age: 64 Year
  Sex: Male

DRUGS (13)
  1. LYRICA [Suspect]
     Indication: NEURALGIA
     Dosage: 150 MG, 2X/DAY
     Route: 048
  2. TOPROL XL [Concomitant]
     Dosage: 25 MG 1 TABLET, UNK
     Route: 048
  3. CYCLOBENZAPR [Concomitant]
     Dosage: UNK
  4. VYTORIN [Concomitant]
     Dosage: EZETIMIBE 10 MG+SIMVASTATIN 20 MG
     Route: 048
  5. ALLOPURINOL [Concomitant]
     Dosage: 300 MG, 1X/DAY
     Route: 048
  6. COLCRYS [Concomitant]
     Dosage: 0.6 MG, 2X/DAY
     Route: 048
  7. FENTANYL [Concomitant]
     Dosage: 50 UG, (Q72H)
     Route: 062
  8. FLEXERIL [Concomitant]
     Dosage: 10 MG, 3X/DAY
     Route: 048
  9. LOTRISONE [Concomitant]
     Dosage: UNK
     Route: 061
  10. MONODOX [Concomitant]
     Dosage: 75 MG, 2X/DAY
     Route: 048
  11. NEXIUM [Concomitant]
     Dosage: 40 MG, 1X/DAY
     Route: 048
  12. ACETAMINOPHEN W/OXYCODONE [Concomitant]
     Dosage: OXYCODONE HYDROCHLORIDE 10MG+ PARACETAMOL 325 MG (Q4-6 HRS PRN )
     Route: 048
  13. VITAMIN D3 [Concomitant]
     Dosage: 2000 IU, UNK

REACTIONS (3)
  - Intervertebral disc protrusion [Unknown]
  - Gout [Unknown]
  - Fibromyalgia [Unknown]
